FAERS Safety Report 16879859 (Version 1)
Quarter: 2019Q4

REPORT INFORMATION
  Report Type: Spontaneous
  Country: US (occurrence: US)
  Receive Date: 20191003
  Receipt Date: 20191003
  Transmission Date: 20200122
  Serious: No
  Sender: FDA-Public Use
  Company Number: US-AMGEN-USASP2019159315

PATIENT
  Sex: Female

DRUGS (3)
  1. CALCIUM [Concomitant]
     Active Substance: CALCIUM
  2. VITAMIN D [COLECALCIFEROL] [Concomitant]
     Active Substance: CHOLECALCIFEROL
  3. PROLIA [Suspect]
     Active Substance: DENOSUMAB
     Indication: OSTEOPOROSIS
     Dosage: 60 MILLIGRAM, Q6MO
     Route: 065

REACTIONS (2)
  - Pollakiuria [Unknown]
  - Bone pain [Unknown]
